FAERS Safety Report 9035234 (Version 1)
Quarter: 2013Q1

REPORT INFORMATION
  Report Type: Spontaneous
  Country: US (occurrence: US)
  Receive Date: 20130129
  Receipt Date: 20130129
  Transmission Date: 20140127
  Serious: No
  Sender: FDA-Public Use
  Company Number: US-ABBOTT-12P-163-0895144-00

PATIENT
  Sex: Male

DRUGS (2)
  1. HUMIRA 40 MG/0.8 ML PEN [Suspect]
     Indication: PSORIASIS
     Route: 058
     Dates: start: 201112, end: 201112
  2. HUMIRA 40 MG/0.8 ML PEN [Suspect]
     Route: 058
     Dates: start: 201112, end: 201201

REACTIONS (2)
  - Urinary tract infection [Recovering/Resolving]
  - Cystitis [Recovering/Resolving]
